FAERS Safety Report 6395048-4 (Version None)
Quarter: 2009Q4

REPORT INFORMATION
  Report Type: 
  Country: None (occurrence: None)
  Receive Date: 20091009
  Receipt Date: 20090929
  Transmission Date: 20100525
  Serious: Yes (Hospitalization, Other)
  Sender: FDA-Public Use
  Company Number: US-PFIZER INC-2009276047

PATIENT
  Sex: Male
  Weight: 86.168 kg

DRUGS (3)
  1. ZYVOX [Suspect]
     Indication: SHOULDER OPERATION
     Dosage: FREQUENCY: 2X\DAY,
     Route: 048
     Dates: start: 20090708, end: 20090712
  2. CRESTOR [Concomitant]
     Dosage: UNK
  3. REMAFEN [Concomitant]
     Indication: HYPOTENSION

REACTIONS (5)
  - FEELING ABNORMAL [None]
  - HYPERSENSITIVITY [None]
  - PRODUCT QUALITY ISSUE [None]
  - RASH [None]
  - SURGERY [None]
